FAERS Safety Report 5094167-2 (Version None)
Quarter: 2006Q3

REPORT INFORMATION
  Report Type: 
  Country: None (occurrence: None)
  Receive Date: 20060830
  Receipt Date: 20060814
  Transmission Date: 20061208
  Serious: Yes (Other)
  Sender: FDA-Public Use
  Company Number: GB200605002821

PATIENT
  Age: 48 Year
  Sex: Male
  Weight: 93 kg

DRUGS (1)
  1. ZYPREXA [Suspect]
     Indication: SCHIZOPHRENIA
     Dosage: 25 MG, ORAL
     Route: 048
     Dates: start: 19990621, end: 20060808

REACTIONS (4)
  - CONDITION AGGRAVATED [None]
  - DIABETES MELLITUS [None]
  - PRESCRIBED OVERDOSE [None]
  - TUBERCULOSIS [None]
